FAERS Safety Report 17737455 (Version 3)
Quarter: 2020Q3

REPORT INFORMATION
  Report Type: Spontaneous
  Country: JP (occurrence: JP)
  Receive Date: 20200504
  Receipt Date: 20200718
  Transmission Date: 20201102
  Serious: Yes (Hospitalization)
  Sender: FDA-Public Use
  Company Number: JP-ABBVIE-20P-087-3387618-00

PATIENT
  Age: 78 Year
  Sex: Male
  Weight: 71.9 kg

DRUGS (5)
  1. MUCOSAL [Concomitant]
     Indication: PRODUCT USED FOR UNKNOWN INDICATION
     Dosage: 45 MILLIGRAM
     Route: 065
  2. LEUPLIN SR [Suspect]
     Active Substance: LEUPROLIDE ACETATE
     Indication: BULBOSPINAL MUSCULAR ATROPHY CONGENITAL
     Route: 058
     Dates: start: 20171128
  3. RIVOTRIL [Suspect]
     Active Substance: CLONAZEPAM
     Indication: BLEPHAROSPASM
     Dosage: 1 MILLIGRAM, QD
     Route: 048
     Dates: start: 20160520
  4. RIVOTRIL [Suspect]
     Active Substance: CLONAZEPAM
     Indication: TREMOR
  5. METHYCOBAL [Concomitant]
     Active Substance: METHYLCOBALAMIN
     Indication: PRODUCT USED FOR UNKNOWN INDICATION
     Dosage: 1000 MICROGRAM
     Route: 065

REACTIONS (1)
  - Fall [Recovered/Resolved]

NARRATIVE: CASE EVENT DATE: 20190317
